FAERS Safety Report 24217038 (Version 1)
Quarter: 2024Q3

REPORT INFORMATION
  Report Type: Report from Study
  Country: US (occurrence: US)
  Receive Date: 20240816
  Receipt Date: 20240816
  Transmission Date: 20241017
  Serious: Yes (Other)
  Sender: ABBVIE
  Company Number: US-ABBVIE-5876125

PATIENT
  Sex: Male

DRUGS (1)
  1. RINVOQ [Suspect]
     Active Substance: UPADACITINIB
     Indication: Colitis ulcerative
     Route: 048
     Dates: start: 20230731

REACTIONS (4)
  - Cataract [Not Recovered/Not Resolved]
  - Eye inflammation [Recovering/Resolving]
  - Hearing aid user [Not Recovered/Not Resolved]
  - Back pain [Not Recovered/Not Resolved]
